FAERS Safety Report 8869116 (Version 1)
Quarter: 2012Q4

REPORT INFORMATION
  Report Type: Spontaneous
  Country: JP (occurrence: None)
  Receive Date: 20121022
  Receipt Date: 20121022
  Transmission Date: 20130627
  Serious: Yes (Hospitalization, Other)
  Sender: FDA-Public Use
  Company Number: HYDX20120005

PATIENT
  Age: 81 Year
  Sex: Male

DRUGS (1)
  1. HYDROXYZINE [Suspect]
     Indication: PRODUCT USED FOR UNKNOWN INDICATION
     Dosage: UNK, UNK, Unknown

REACTIONS (2)
  - Acute generalised exanthematous pustulosis [None]
  - Psoriasis [None]
